FAERS Safety Report 10146982 (Version 1)
Quarter: 2014Q2

REPORT INFORMATION
  Report Type: Spontaneous
  Country: US (occurrence: None)
  Receive Date: 20140430
  Receipt Date: 20140430
  Transmission Date: 20141212
  Serious: Yes (Hospitalization)
  Sender: FDA-Public Use
  Company Number: None

PATIENT
  Age: 66 Year
  Sex: Male

DRUGS (13)
  1. AMIODARONE [Suspect]
     Indication: ATRIAL FIBRILLATION
     Route: 048
     Dates: start: 20130612
  2. AMIODERONE [Concomitant]
  3. ASPIRIN [Concomitant]
  4. COENZYME Q10 [Concomitant]
  5. ATORVASTAIN [Concomitant]
  6. DILTIAZEM [Concomitant]
  7. MULTIVITAMIN [Concomitant]
  8. LOSARTAN/HCTZ [Concomitant]
  9. RIVEROXABAN [Concomitant]
  10. SERTRALINE [Concomitant]
  11. METOPROLOL [Concomitant]
  12. FENOFIBRATE [Concomitant]
  13. EZETIMIBE [Concomitant]

REACTIONS (9)
  - Toxicity to various agents [None]
  - Interstitial lung disease [None]
  - Atrial fibrillation [None]
  - Respiratory disorder [None]
  - Confusional state [None]
  - Hypotension [None]
  - Staphylococcal infection [None]
  - Acute respiratory distress syndrome [None]
  - Agitation [None]
